FAERS Safety Report 18326185 (Version 4)
Quarter: 2020Q4

REPORT INFORMATION
  Report Type: Spontaneous
  Country: CH (occurrence: GR)
  Receive Date: 20200929
  Receipt Date: 20201209
  Transmission Date: 20210113
  Serious: Yes (Disabling, Other)
  Sender: FDA-Public Use
  Company Number: CH-MYLANLABS-2020M1082514

PATIENT
  Age: 38 Year
  Sex: Male

DRUGS (1)
  1. SILDENAFIL. [Suspect]
     Active Substance: SILDENAFIL
     Indication: DRUG THERAPY
     Dosage: 3 DOSAGE FORM, QD (IN THE NIGHT WHEN BLEEDING APPEARED)
     Route: 048

REACTIONS (4)
  - Blindness [Recovered/Resolved]
  - Maculopathy [Recovered/Resolved]
  - Intentional overdose [Recovered/Resolved]
  - Retinal haemorrhage [Recovered/Resolved]
